FAERS Safety Report 8922706 (Version 2)
Quarter: 2012Q4

REPORT INFORMATION
  Report Type: 
  Country: GB (occurrence: GB)
  Receive Date: 20121123
  Receipt Date: 20121128
  Transmission Date: 20130627
  Serious: No
  Sender: FDA-Public Use
  Company Number: GB-PFIZER INC-2012289466

PATIENT

DRUGS (1)
  1. SUNITINIB MALATE [Suspect]
     Indication: GLOMUS JUGULARE TUMOUR
     Dosage: 37.5 mg, 1x/day

REACTIONS (1)
  - Off label use [Unknown]
